FAERS Safety Report 9987362 (Version 5)
Quarter: 2019Q2

REPORT INFORMATION
  Report Type: Report from Study
  Country: US (occurrence: US)
  Receive Date: 20140307
  Receipt Date: 20190410
  Transmission Date: 20190711
  Serious: Yes (Other)
  Sender: FDA-Public Use
  Company Number: US-AMGEN-USASP2014010911

PATIENT
  Age: 41 Year
  Sex: Male

DRUGS (2)
  1. RITALIN [Concomitant]
     Active Substance: METHYLPHENIDATE HYDROCHLORIDE
     Dosage: UNK
  2. ENBREL [Suspect]
     Active Substance: ETANERCEPT
     Indication: ANKYLOSING SPONDYLITIS
     Dosage: 50 MILLIGRAM, QWK
     Route: 065
     Dates: start: 20131108

REACTIONS (19)
  - Thermal burn [Unknown]
  - Therapeutic product effect decreased [Not Recovered/Not Resolved]
  - Peripheral swelling [Unknown]
  - Impaired healing [Unknown]
  - Sinusitis [Not Recovered/Not Resolved]
  - Ankylosing spondylitis [Not Recovered/Not Resolved]
  - Increased tendency to bruise [Not Recovered/Not Resolved]
  - Fluid retention [Unknown]
  - Pain [Not Recovered/Not Resolved]
  - Gingival discolouration [Unknown]
  - Arthritis [Unknown]
  - Hypersensitivity [Not Recovered/Not Resolved]
  - Abdominal distension [Unknown]
  - Joint swelling [Unknown]
  - Tooth loss [Unknown]
  - Contusion [Unknown]
  - Dermatitis contact [Not Recovered/Not Resolved]
  - Skin laceration [Unknown]
  - Weight increased [Not Recovered/Not Resolved]

NARRATIVE: CASE EVENT DATE: 201311
